FAERS Safety Report 4385007-5 (Version None)
Quarter: 2004Q2

REPORT INFORMATION
  Report Type: 
  Country: None (occurrence: None)
  Receive Date: 20040623
  Receipt Date: 20040623
  Transmission Date: 20050107
  Serious: Yes (Life-Threatening, Hospitalization)
  Sender: FDA-Public Use
  Company Number: None

PATIENT
  Age: 10 Year
  Sex: Male
  Weight: 41 kg

DRUGS (8)
  1. ASPARAGINASE [Suspect]
     Indication: ACUTE LYMPHOCYTIC LEUKAEMIA
     Dosage: 13000 UNITS IM
     Route: 030
     Dates: start: 20040403
  2. ASPARAGINASE [Suspect]
     Indication: ACUTE LYMPHOCYTIC LEUKAEMIA
     Dosage: 13000 UNITS IM
     Route: 030
     Dates: start: 20040406
  3. ASPARAGINASE [Suspect]
     Indication: ACUTE LYMPHOCYTIC LEUKAEMIA
     Dosage: 13000 UNITS IM
     Route: 030
     Dates: start: 20040409
  4. ASPARAGINASE [Suspect]
     Indication: ACUTE LYMPHOCYTIC LEUKAEMIA
     Dosage: 13000 UNITS IM
     Route: 030
     Dates: start: 20040413
  5. ASPARAGINASE [Suspect]
     Indication: ACUTE LYMPHOCYTIC LEUKAEMIA
     Dosage: 13000 UNITS IM
     Route: 030
     Dates: start: 20040420
  6. DAUNORUBICIN HCL [Concomitant]
  7. VINCRISTINE [Concomitant]
  8. METHOTREXATE [Concomitant]

REACTIONS (5)
  - ASCITES [None]
  - PANCREATIC PHLEGMON [None]
  - PANCREATITIS [None]
  - PLEURAL EFFUSION [None]
  - PSEUDOCYST [None]
